FAERS Safety Report 4949074-X (Version None)
Quarter: 2006Q1

REPORT INFORMATION
  Report Type: 
  Country: None (occurrence: None)
  Receive Date: 20060316
  Receipt Date: 20060308
  Transmission Date: 20060701
  Serious: Yes (Other)
  Sender: FDA-Public Use
  Company Number: 2006033701

PATIENT
  Sex: Female

DRUGS (5)
  1. NEURONTIN [Suspect]
     Indication: ILL-DEFINED DISORDER
  2. GLUCOVANCE [Concomitant]
  3. LOPRESSOR [Concomitant]
  4. PLAVIX [Concomitant]
  5. PROZAC [Concomitant]

REACTIONS (4)
  - DIABETES MELLITUS [None]
  - FOOT AMPUTATION [None]
  - LEG AMPUTATION [None]
  - TOE AMPUTATION [None]
